FAERS Safety Report 22274002 (Version 1)
Quarter: 2023Q2

REPORT INFORMATION
  Report Type: Spontaneous
  Country: CN (occurrence: None)
  Receive Date: 20230502
  Receipt Date: 20230502
  Transmission Date: 20230721
  Serious: Yes (Hospitalization)
  Sender: FDA-Public Use
  Company Number: CN-SUPERNUS Pharmaceuticals, Inc.-SUP202304-001446

PATIENT
  Age: 29 Year
  Sex: Male

DRUGS (2)
  1. OXCARBAZEPINE [Suspect]
     Active Substance: OXCARBAZEPINE
     Indication: Epilepsy
     Route: 048
     Dates: start: 20180403
  2. LEVETIRACETAM [Concomitant]
     Active Substance: LEVETIRACETAM
     Route: 048

REACTIONS (4)
  - Ventricular extrasystoles [Unknown]
  - Syncope [Recovered/Resolved]
  - Atrioventricular block [Recovered/Resolved]
  - Inappropriate schedule of product administration [Unknown]

NARRATIVE: CASE EVENT DATE: 20180401
